FAERS Safety Report 24769608 (Version 1)
Quarter: 2024Q4

REPORT INFORMATION
  Report Type: Spontaneous
  Country: US (occurrence: None)
  Receive Date: 20241223
  Receipt Date: 20241223
  Transmission Date: 20250114
  Serious: Yes (Other)
  Sender: Public
  Company Number: None

PATIENT
  Age: 69 Year
  Sex: Female

DRUGS (1)
  1. SILIQ [Suspect]
     Active Substance: BRODALUMAB
     Indication: Psoriasis
     Dosage: FREQUENCY : DAILY;?
     Dates: start: 20240722, end: 20240725

REACTIONS (2)
  - Anger [None]
  - Mood altered [None]

NARRATIVE: CASE EVENT DATE: 20241025
